FAERS Safety Report 8014353-9 (Version None)
Quarter: 2011Q4

REPORT INFORMATION
  Report Type: 
  Country: None (occurrence: None)
  Receive Date: 20111229
  Receipt Date: 20111219
  Transmission Date: 20120403
  Serious: Yes (Other)
  Sender: FDA-Public Use
  Company Number: US-ABBOTT-11P-163-0886437-00

PATIENT
  Sex: Male
  Weight: 83.99 kg

DRUGS (6)
  1. HYDROCORTISONE [Concomitant]
     Indication: ADRENAL INSUFFICIENCY
  2. ZOCOR [Concomitant]
     Indication: BLOOD CHOLESTEROL INCREASED
  3. ANDROGEL [Suspect]
     Indication: BLOOD TESTOSTERONE DECREASED
     Route: 061
     Dates: start: 20080101
  4. HYDROCORTISONE [Concomitant]
     Indication: HYPOTHALAMO-PITUITARY DISORDER
  5. SYNTHROID [Concomitant]
     Indication: HYPOTHYROIDISM
  6. SYNTHROID [Concomitant]
     Indication: HYPOPHYSECTOMY

REACTIONS (6)
  - ROTATOR CUFF SYNDROME [None]
  - THERAPEUTIC RESPONSE UNEXPECTED [None]
  - WEIGHT INCREASED [None]
  - LIBIDO INCREASED [None]
  - MUSCULOSKELETAL PAIN [None]
  - UNEVALUABLE EVENT [None]
